FAERS Safety Report 17121929 (Version 1)
Quarter: 2019Q4

REPORT INFORMATION
  Report Type: Spontaneous
  Country: US (occurrence: US)
  Receive Date: 20191206
  Receipt Date: 20191206
  Transmission Date: 20200122
  Serious: No
  Sender: FDA-Public Use
  Company Number: US-GLAXOSMITHKLINE-US2019220290

PATIENT
  Age: 16 Year
  Sex: Male

DRUGS (1)
  1. EXCEDRIN MIGRAINE [Suspect]
     Active Substance: ACETAMINOPHEN\ASPIRIN\CAFFEINE
     Indication: MIGRAINE
     Dosage: 1 DF
     Dates: start: 20191203

REACTIONS (4)
  - Incorrect dose administered [Unknown]
  - Contraindicated product administered [Unknown]
  - Product administered to patient of inappropriate age [Unknown]
  - Vomiting [Unknown]

NARRATIVE: CASE EVENT DATE: 20191203
